FAERS Safety Report 7831614-4 (Version None)
Quarter: 2011Q4

REPORT INFORMATION
  Report Type: 
  Country: None (occurrence: None)
  Receive Date: 20111021
  Receipt Date: 20111014
  Transmission Date: 20120403
  Serious: Yes (Hospitalization, Other)
  Sender: FDA-Public Use
  Company Number: PHHY2011JP10611

PATIENT
  Sex: Male

DRUGS (12)
  1. AFINITOR [Suspect]
     Indication: METASTATIC RENAL CELL CARCINOMA
     Dosage: 10 MG, DAILY
     Route: 048
     Dates: start: 20100904, end: 20100917
  2. KALIMATE [Concomitant]
     Dosage: 10 MG, UNK
     Route: 048
     Dates: start: 20100922
  3. TECELEUKIN [Concomitant]
     Indication: METASTATIC RENAL CELL CARCINOMA
     Dosage: 350000IU
     Dates: start: 20090601, end: 20100801
  4. AFINITOR [Suspect]
     Dosage: 5 MG, DAILY
     Route: 048
     Dates: start: 20100918, end: 20100922
  5. DOXAZOSIN MESYLATE [Concomitant]
     Dosage: 2 MG, UNK
     Route: 048
     Dates: start: 20100922
  6. COMELIAN [Concomitant]
     Dosage: 30 MG, UNK
     Route: 048
     Dates: start: 20100922
  7. INTERFERON ALFA [Concomitant]
     Indication: METASTATIC RENAL CELL CARCINOMA
     Dosage: 3000000IU
     Dates: start: 20080801, end: 20081101
  8. ALLOPURINOL [Concomitant]
     Dosage: 100 MG, UNK
     Route: 048
     Dates: start: 20100922
  9. LASIX [Concomitant]
     Dosage: 20 MG, UNK
     Route: 048
     Dates: start: 20100922
  10. DECADRON [Concomitant]
     Dosage: UNK
     Route: 048
     Dates: start: 20100922
  11. CANDESARTAN CILEXETIL [Concomitant]
     Dosage: 8 MG, UNK
     Route: 048
     Dates: start: 20100922
  12. ADALAT [Concomitant]
     Dosage: 20 MG, UNK
     Route: 048
     Dates: start: 20100922

REACTIONS (10)
  - ATELECTASIS [None]
  - LYMPHANGIOSIS CARCINOMATOSA [None]
  - PLEURAL EFFUSION [None]
  - PYREXIA [None]
  - ANAEMIA [None]
  - HYPERGLYCAEMIA [None]
  - C-REACTIVE PROTEIN INCREASED [None]
  - HILAR LYMPHADENOPATHY [None]
  - RESPIRATORY DISTRESS [None]
  - RENAL FAILURE [None]
